FAERS Safety Report 14224087 (Version 1)
Quarter: 2017Q4

REPORT INFORMATION
  Report Type: Spontaneous
  Country: US (occurrence: US)
  Receive Date: 20171125
  Receipt Date: 20171125
  Transmission Date: 20180321
  Serious: Yes (Other)
  Sender: FDA-Public Use
  Company Number: None

PATIENT
  Age: 64 Year
  Sex: Female
  Weight: 72 kg

DRUGS (6)
  1. LEVOFLOXACIN 500MG [Suspect]
     Active Substance: LEVOFLOXACIN
     Indication: DYSPNOEA
     Route: 048
     Dates: start: 20171115, end: 20171120
  2. DETROL LA [Concomitant]
     Active Substance: TOLTERODINE TARTRATE
  3. ALBUTEROL. [Concomitant]
     Active Substance: ALBUTEROL
  4. TIMOPTIC [Concomitant]
     Active Substance: TIMOLOL MALEATE
  5. MICARDIS [Concomitant]
     Active Substance: TELMISARTAN
  6. TRUSOPT [Concomitant]
     Active Substance: DORZOLAMIDE HYDROCHLORIDE

REACTIONS (2)
  - Tendonitis [None]
  - Pain in extremity [None]

NARRATIVE: CASE EVENT DATE: 20171115
